FAERS Safety Report 7834081-X (Version None)
Quarter: 2011Q4

REPORT INFORMATION
  Report Type: 
  Country: None (occurrence: None)
  Receive Date: 20111024
  Receipt Date: 20111024
  Transmission Date: 20120403
  Serious: Yes (Hospitalization)
  Sender: FDA-Public Use
  Company Number: None

PATIENT
  Age: 64 Year
  Sex: Male
  Weight: 80.739 kg

DRUGS (1)
  1. CLINDAMYCIN [Suspect]
     Indication: LOCALISED INFECTION
     Dosage: 1200MG
     Route: 042
     Dates: start: 20110721, end: 20110723

REACTIONS (1)
  - CLOSTRIDIAL INFECTION [None]
